FAERS Safety Report 5872775-6 (Version None)
Quarter: 2008Q3

REPORT INFORMATION
  Report Type: 
  Country: None (occurrence: None)
  Receive Date: 20080829
  Receipt Date: 20080225
  Transmission Date: 20090109
  Serious: Yes (Other)
  Sender: FDA-Public Use
  Company Number: 2008-00213FE

PATIENT
  Age: 28 Year
  Sex: Female

DRUGS (4)
  1. FSH HP () (FOLLICLE-STIMULATING HORMONE, HUMAN) [Suspect]
     Indication: INFERTILITY
  2. GNRH ANALOGUE () () [Suspect]
  3. HCG () (CHORIONIC GONADOTROPHIN) [Suspect]
     Indication: INFERTILITY
  4. HMG () () [Suspect]
     Indication: INFERTILITY

REACTIONS (1)
  - BENIGN HYDATIDIFORM MOLE [None]
